FAERS Safety Report 7096373-4 (Version None)
Quarter: 2010Q4

REPORT INFORMATION
  Report Type: 
  Country: None (occurrence: None)
  Receive Date: 20101111
  Receipt Date: 20100816
  Transmission Date: 20110411
  Serious: No
  Sender: FDA-Public Use
  Company Number: US-BRISTOL-MYERS SQUIBB COMPANY-15233018

PATIENT
  Age: 72 Year
  Sex: Female

DRUGS (13)
  1. IXEMPRA KIT [Suspect]
     Indication: BREAST CANCER
     Dosage: 8 DAYS AGO
     Route: 042
     Dates: start: 20100630
  2. ATENOLOL [Concomitant]
  3. ATENOLOL [Concomitant]
  4. CARDURA [Concomitant]
  5. NORVASC [Concomitant]
  6. SYNTHROID [Concomitant]
  7. FERROUS SULFATE [Concomitant]
  8. SYNACORT [Concomitant]
  9. IRON [Concomitant]
  10. SIMCOR [Concomitant]
     Dosage: 1DF:500/20 MG
  11. ASTELIN SPRAY [Concomitant]
     Dosage: 2DF:2 SPRAYS
  12. OXYCODONE HCL [Concomitant]
  13. ALLEGRA [Concomitant]

REACTIONS (2)
  - BLOOD PRESSURE DECREASED [None]
  - HYPERHIDROSIS [None]
